FAERS Safety Report 8441560-3 (Version None)
Quarter: 2012Q2

REPORT INFORMATION
  Report Type: 
  Country: None (occurrence: None)
  Receive Date: 20120615
  Receipt Date: 20110930
  Transmission Date: 20120825
  Serious: No
  Sender: FDA-Public Use
  Company Number: US-NOVEN-11US003351

PATIENT
  Sex: Female
  Weight: 34.467 kg

DRUGS (2)
  1. DAYTRANA [Suspect]
     Dosage: 2X10MG, QD
     Route: 062
     Dates: start: 20110930
  2. DAYTRANA [Suspect]
     Indication: PRODUCT USED FOR UNKNOWN INDICATION
     Dosage: 10 MG, QD
     Route: 062
     Dates: start: 20110927, end: 20110929

REACTIONS (5)
  - INCORRECT DRUG ADMINISTRATION DURATION [None]
  - ABNORMAL BEHAVIOUR [None]
  - WRONG TECHNIQUE IN DRUG USAGE PROCESS [None]
  - PSYCHOMOTOR HYPERACTIVITY [None]
  - DRUG PRESCRIBING ERROR [None]
